FAERS Safety Report 8622702-3 (Version None)
Quarter: 2012Q3

REPORT INFORMATION
  Report Type: 
  Country: None (occurrence: None)
  Receive Date: 20120827
  Receipt Date: 20120816
  Transmission Date: 20120928
  Serious: Yes (Hospitalization)
  Sender: FDA-Public Use
  Company Number: US-BAYER-2011-001159

PATIENT
  Age: 45 Year
  Sex: Female
  Weight: 72.562 kg

DRUGS (2)
  1. YAZ [Suspect]
     Indication: ORAL CONTRACEPTION
     Dosage: UNK
     Dates: start: 20081215, end: 20090301
  2. MESALAMINE [Concomitant]
     Dosage: 1000 MG, BID
     Route: 054

REACTIONS (2)
  - PULMONARY EMBOLISM [None]
  - PAIN [None]
